FAERS Safety Report 24836554 (Version 2)
Quarter: 2025Q3

REPORT INFORMATION
  Report Type: Spontaneous
  Country: US (occurrence: US)
  Receive Date: 20250113
  Receipt Date: 20250710
  Transmission Date: 20251021
  Serious: No
  Sender: SANOFI AVENTIS
  Company Number: US-SA-2025SA010619

PATIENT
  Age: 67 Year
  Sex: Male
  Weight: 104.55 kg

DRUGS (6)
  1. DUPIXENT [Suspect]
     Active Substance: DUPILUMAB
     Indication: Dermatitis atopic
     Dosage: 300MG; QOW
     Route: 058
     Dates: end: 202505
  2. LOSARTAN POTASSIUM [Concomitant]
     Active Substance: LOSARTAN POTASSIUM
  3. HYDROXYZINE HYDROCHLORIDE [Concomitant]
     Active Substance: HYDROXYZINE HYDROCHLORIDE
  4. PEPCID [Concomitant]
     Active Substance: FAMOTIDINE
  5. FEXOFENADINE HYDROCHLORIDE [Concomitant]
     Active Substance: FEXOFENADINE HYDROCHLORIDE
  6. ALLEGRA ALLERGY [Concomitant]
     Active Substance: FEXOFENADINE HYDROCHLORIDE

REACTIONS (4)
  - Drug hypersensitivity [Unknown]
  - Pain [Unknown]
  - Erythema [Unknown]
  - Injection site pain [Unknown]
